FAERS Safety Report 5194518-4 (Version None)
Quarter: 2006Q4

REPORT INFORMATION
  Report Type: 
  Country: None (occurrence: None)
  Receive Date: 20061222
  Receipt Date: 20061219
  Transmission Date: 20070319
  Serious: Yes (Hospitalization)
  Sender: FDA-Public Use
  Company Number: CAWYE826231AUG06

PATIENT
  Age: 26 Year
  Sex: Female

DRUGS (3)
  1. EFFEXOR XR [Suspect]
     Indication: DEPRESSION
     Dosage: 150 MG OD ORAL
     Route: 048
     Dates: start: 20010101
  2. MULTAMIN (VITAMINS NOS) [Concomitant]
  3. CLOMID [Concomitant]

REACTIONS (3)
  - ABORTION SPONTANEOUS [None]
  - DRUG EXPOSURE DURING PREGNANCY [None]
  - INFERTILITY [None]
